FAERS Safety Report 14371899 (Version 1)
Quarter: 2018Q1

REPORT INFORMATION
  Report Type: Spontaneous
  Country: US (occurrence: US)
  Receive Date: 20180109
  Receipt Date: 20180109
  Transmission Date: 20180509
  Serious: Yes (Disabling)
  Sender: FDA-Public Use
  Company Number: None

PATIENT
  Age: 19 Year
  Sex: Female
  Weight: 63 kg

DRUGS (1)
  1. PROAIR INHALER [Suspect]
     Active Substance: ALBUTEROL SULFATE
     Indication: ASTHMA
     Dosage: 2 PUFFS; RESPIRATORY (INHALATION)
     Route: 055
     Dates: end: 20180109

REACTIONS (2)
  - Product label issue [None]
  - Dental caries [None]

NARRATIVE: CASE EVENT DATE: 20180103
